FAERS Safety Report 16808552 (Version 5)
Quarter: 2021Q2

REPORT INFORMATION
  Report Type: Spontaneous
  Country: US (occurrence: US)
  Receive Date: 20190916
  Receipt Date: 20210622
  Transmission Date: 20210716
  Serious: Yes (Other)
  Sender: FDA-Public Use
  Company Number: US-GILEAD-2019-0428008

PATIENT
  Age: 49 Year
  Sex: Female

DRUGS (52)
  1. DESCOVY [Concomitant]
     Active Substance: EMTRICITABINE\TENOFOVIR ALAFENAMIDE FUMARATE
  2. ACETAMINOPHEN. [Concomitant]
     Active Substance: ACETAMINOPHEN
  3. ALPRAZOLAM. [Concomitant]
     Active Substance: ALPRAZOLAM
  4. ASPIRIN 81 [Concomitant]
     Active Substance: ASPIRIN
  5. NYSTATIN. [Concomitant]
     Active Substance: NYSTATIN
  6. CEFDINIR. [Concomitant]
     Active Substance: CEFDINIR
  7. TRUVADA [Suspect]
     Active Substance: EMTRICITABINE\TENOFOVIR DISOPROXIL FUMARATE
     Indication: HIV INFECTION
     Dosage: UNK
     Route: 048
     Dates: start: 201012, end: 201609
  8. TRUVADA [Suspect]
     Active Substance: EMTRICITABINE\TENOFOVIR DISOPROXIL FUMARATE
     Dosage: UNK
     Route: 065
     Dates: start: 200811, end: 201012
  9. TRUVADA [Suspect]
     Active Substance: EMTRICITABINE\TENOFOVIR DISOPROXIL FUMARATE
     Dosage: UNK
     Route: 065
     Dates: start: 2008, end: 2016
  10. ATRIPLA [Suspect]
     Active Substance: EFAVIRENZ\EMTRICITABINE\TENOFOVIR DISOPROXIL FUMARATE
     Indication: HIV INFECTION
     Dosage: UNK
     Route: 048
     Dates: start: 200707, end: 200810
  11. DOCUSATE SODIUM. [Concomitant]
     Active Substance: DOCUSATE SODIUM
  12. FLUOCINONIDE. [Concomitant]
     Active Substance: FLUOCINONIDE
  13. AVELOX [Concomitant]
     Active Substance: MOXIFLOXACIN HYDROCHLORIDE
  14. ADVAIR HFA [Concomitant]
     Active Substance: FLUTICASONE PROPIONATE\SALMETEROL XINAFOATE
  15. BISACODYL. [Concomitant]
     Active Substance: BISACODYL
  16. ESCITALOPRAM [Concomitant]
     Active Substance: ESCITALOPRAM OXALATE
  17. DULERA [Concomitant]
     Active Substance: FORMOTEROL FUMARATE DIHYDRATE\MOMETASONE FUROATE
  18. PREDNISONE. [Concomitant]
     Active Substance: PREDNISONE
  19. DAPSONE. [Concomitant]
     Active Substance: DAPSONE
  20. NASONEX [Concomitant]
     Active Substance: MOMETASONE FUROATE
  21. KETOCONAZOLE. [Concomitant]
     Active Substance: KETOCONAZOLE
  22. SPIRIVA [Concomitant]
     Active Substance: TIOTROPIUM BROMIDE MONOHYDRATE
  23. SYMBICORT [Concomitant]
     Active Substance: BUDESONIDE\FORMOTEROL FUMARATE DIHYDRATE
  24. MONTELUKAST [Concomitant]
     Active Substance: MONTELUKAST SODIUM
  25. XYZAL [Concomitant]
     Active Substance: LEVOCETIRIZINE DIHYDROCHLORIDE
  26. AZITHROMYCIN ANHYDROUS. [Concomitant]
     Active Substance: AZITHROMYCIN ANHYDROUS
  27. TUSSIONEX [HYDROCODONE BITARTRATE;PHENYLTOLOXAMINE] [Concomitant]
  28. FEXOFENADINE [Concomitant]
     Active Substance: FEXOFENADINE HYDROCHLORIDE
  29. LEUCOVORIN CALCIUM. [Concomitant]
     Active Substance: LEUCOVORIN CALCIUM
  30. ERGOCALCIFEROL. [Concomitant]
     Active Substance: ERGOCALCIFEROL
  31. PROTONIX [Concomitant]
     Active Substance: PANTOPRAZOLE SODIUM
  32. VENTOLIN [Concomitant]
     Active Substance: ALBUTEROL SULFATE
  33. DEXILANT [Concomitant]
     Active Substance: DEXLANSOPRAZOLE
  34. METRONIDAZOLE. [Concomitant]
     Active Substance: METRONIDAZOLE
  35. COMBIVIR [Concomitant]
     Active Substance: LAMIVUDINE\ZIDOVUDINE
  36. EPINEPHRINE. [Concomitant]
     Active Substance: EPINEPHRINE
  37. LIDOCAINE. [Concomitant]
     Active Substance: LIDOCAINE
  38. NORVIR [Concomitant]
     Active Substance: RITONAVIR
  39. RITONAVIR. [Concomitant]
     Active Substance: RITONAVIR
  40. CEPHALEXIN [CEFALEXIN] [Concomitant]
     Active Substance: CEPHALEXIN
  41. DRONABINOL. [Concomitant]
     Active Substance: DRONABINOL
  42. ISENTRESS [Concomitant]
     Active Substance: RALTEGRAVIR POTASSIUM
  43. PREZISTA [Concomitant]
     Active Substance: DARUNAVIR ETHANOLATE
  44. MEPRON [Concomitant]
     Active Substance: ATOVAQUONE
  45. CIPROFLOXACIN. [Concomitant]
     Active Substance: CIPROFLOXACIN
  46. ATRIPLA [Suspect]
     Active Substance: EFAVIRENZ\EMTRICITABINE\TENOFOVIR DISOPROXIL FUMARATE
     Dosage: UNK
     Route: 048
     Dates: start: 200707, end: 200810
  47. HYDROCODONE [Concomitant]
     Active Substance: HYDROCODONE
  48. MELOXICAM. [Concomitant]
     Active Substance: MELOXICAM
  49. TRAMADOL. [Concomitant]
     Active Substance: TRAMADOL
  50. VERAMYST [Concomitant]
     Active Substance: FLUTICASONE FUROATE
  51. DARAPRIM [Concomitant]
     Active Substance: PYRIMETHAMINE
  52. BENTYL [Concomitant]
     Active Substance: DICYCLOMINE HYDROCHLORIDE

REACTIONS (14)
  - Bone density decreased [Unknown]
  - Bone loss [Unknown]
  - Economic problem [Unknown]
  - Anhedonia [Unknown]
  - Anxiety [Unknown]
  - Osteonecrosis [Not Recovered/Not Resolved]
  - Arthritis [Not Recovered/Not Resolved]
  - Osteoporosis [Unknown]
  - Pain [Unknown]
  - Osteoarthritis [Not Recovered/Not Resolved]
  - Arthritis [Not Recovered/Not Resolved]
  - Deafness [Not Recovered/Not Resolved]
  - Osteoarthritis [Not Recovered/Not Resolved]
  - Emotional distress [Unknown]

NARRATIVE: CASE EVENT DATE: 201801
